FAERS Safety Report 17482528 (Version 1)
Quarter: 2020Q1

REPORT INFORMATION
  Report Type: Spontaneous
  Country: US (occurrence: US)
  Receive Date: 20200302
  Receipt Date: 20200302
  Transmission Date: 20200409
  Serious: Yes (Hospitalization, Other)
  Sender: FDA-Public Use
  Company Number: US-GLENMARK PHARMACEUTICALS-2019GMK043976

PATIENT
  Age: 47 Year
  Sex: Male

DRUGS (2)
  1. ROSUVASTATIN CALCIUM. [Suspect]
     Active Substance: ROSUVASTATIN CALCIUM
     Indication: HYPERCHOLESTEROLAEMIA
     Dosage: 5 MG, OD
     Route: 065
  2. URSODEOXYCHOLIC ACID [Suspect]
     Active Substance: URSODIOL
     Indication: DRUG-INDUCED LIVER INJURY
     Dosage: UNK
     Route: 065

REACTIONS (5)
  - Autoimmune hepatitis [Recovering/Resolving]
  - Hepatitis acute [Recovering/Resolving]
  - Acute hepatic failure [Recovering/Resolving]
  - Drug-induced liver injury [Recovering/Resolving]
  - Drug ineffective for unapproved indication [Unknown]
